FAERS Safety Report 13193965 (Version 1)
Quarter: 2017Q1

REPORT INFORMATION
  Report Type: Spontaneous
  Country: TR (occurrence: TR)
  Receive Date: 20170207
  Receipt Date: 20170207
  Transmission Date: 20170428
  Serious: Yes (Hospitalization)
  Sender: FDA-Public Use
  Company Number: TR-MYLANLABS-2017M1007428

PATIENT

DRUGS (2)
  1. CLOZAPINE. [Suspect]
     Active Substance: CLOZAPINE
     Indication: PSYCHOTIC DISORDER
     Dosage: UNK
  2. CLOZAPINE. [Suspect]
     Active Substance: CLOZAPINE
     Indication: SCHIZOAFFECTIVE DISORDER

REACTIONS (11)
  - Abnormal behaviour [Unknown]
  - Condition aggravated [Unknown]
  - Aggression [Unknown]
  - Dysarthria [Unknown]
  - Niemann-Pick disease [Unknown]
  - Therapy non-responder [Unknown]
  - Dystonia [Unknown]
  - Insomnia [Unknown]
  - Dysphagia [Unknown]
  - Psychiatric symptom [Unknown]
  - Gait disturbance [Unknown]
